FAERS Safety Report 21229066 (Version 1)
Quarter: 2022Q3

REPORT INFORMATION
  Report Type: Spontaneous
  Country: JP (occurrence: JP)
  Receive Date: 20220818
  Receipt Date: 20220818
  Transmission Date: 20221027
  Serious: Yes (Hospitalization, Other)
  Sender: FDA-Public Use
  Company Number: None

PATIENT
  Age: 60 Year
  Sex: Female

DRUGS (1)
  1. PREDNISOLONE [Suspect]
     Active Substance: PREDNISOLONE
     Indication: Dermatomyositis
     Dosage: 5 MILLIGRAM/PER DAY
     Route: 065

REACTIONS (4)
  - Diaphragm muscle weakness [Unknown]
  - Peritoneal dialysate leakage [Unknown]
  - Pleuroperitoneal communication [Unknown]
  - Renal impairment [Unknown]
